FAERS Safety Report 5193882-X (Version None)
Quarter: 2006Q4

REPORT INFORMATION
  Report Type: 
  Country: None (occurrence: None)
  Receive Date: 20061222
  Receipt Date: 20061211
  Transmission Date: 20070319
  Serious: No
  Sender: FDA-Public Use
  Company Number: TPA2006A02226

PATIENT
  Age: 51 Year
  Sex: Male
  Weight: 104.3273 kg

DRUGS (2)
  1. ROZEREM [Suspect]
     Indication: INSOMNIA
     Dosage: 8 MG, HS, PER ORAL
     Route: 048
     Dates: start: 20061101, end: 20061101
  2. CYMBALTA [Concomitant]

REACTIONS (2)
  - ECONOMIC PROBLEM [None]
  - SLEEP DISORDER [None]
